FAERS Safety Report 17811313 (Version 1)
Quarter: 2020Q2

REPORT INFORMATION
  Report Type: Spontaneous
  Country: NO (occurrence: NO)
  Receive Date: 20200521
  Receipt Date: 20200521
  Transmission Date: 20200714
  Serious: Yes (Death, Other)
  Sender: FDA-Public Use
  Company Number: NO-PFIZER INC-2020199175

PATIENT
  Age: 79 Year
  Sex: Female
  Weight: 62 kg

DRUGS (16)
  1. PANTOPRAZOLE [Concomitant]
     Active Substance: PANTOPRAZOLE
     Indication: PROPHYLAXIS AGAINST GASTROINTESTINAL ULCER
     Dosage: 40 MG, ONCE DAILY
     Route: 048
     Dates: start: 20200115
  2. LEVAXIN [Concomitant]
     Active Substance: LEVOTHYROXINE SODIUM
     Indication: HYPOTHYROIDISM
     Dosage: 100 UG, CYCLIC (SATURDAY AND SUNDAY)
     Route: 048
  3. LEVAXIN [Concomitant]
     Active Substance: LEVOTHYROXINE SODIUM
     Dosage: 50 UG, CYCLIC (SATURDAY AND SUNDAY)
     Route: 048
  4. IBARIL [Concomitant]
     Dosage: 1 DF, TWICE DAILY
     Route: 003
  5. BUMETANIDE. [Concomitant]
     Active Substance: BUMETANIDE
     Dosage: 1 MG, ONCE DAILY
     Route: 048
     Dates: end: 20200317
  6. BISOPROLOL SANDOZ [Concomitant]
     Active Substance: BISOPROLOL
     Indication: HYPERTENSION
     Dosage: 5 MG, TWICE DAILY (EVERY 12 HOURS)
     Route: 048
  7. DEXAMETASON ABCUR [Concomitant]
     Dosage: 1 MG, DAILY
     Dates: start: 20200316
  8. ELIQUIS [Concomitant]
     Active Substance: APIXABAN
     Indication: ATRIAL FIBRILLATION
     Dosage: 5 MG, TWICE DAILY (EVERY 12 HOURS)
     Route: 048
     Dates: end: 20200317
  9. CORDARONE [Suspect]
     Active Substance: AMIODARONE HYDROCHLORIDE
     Indication: ATRIAL FIBRILLATION
     Dosage: 100 MG, ONCE DAILY (IN THE MORNING)
     Route: 048
     Dates: start: 2017
  10. DEXAMETASON ABCUR [Concomitant]
     Dosage: 2 MG, DAILY
     Dates: start: 20200309, end: 20200315
  11. PARACET [PARACETAMOL] [Concomitant]
     Indication: PAIN
     Dosage: 1 G, AS NEEDED (UP TO THRICE DAILY)
     Route: 048
  12. LIPITOR [Concomitant]
     Active Substance: ATORVASTATIN CALCIUM
     Indication: BLOOD CHOLESTEROL INCREASED
     Dosage: 40 MG, ONCE DAILY
     Route: 048
     Dates: end: 20200317
  13. IBRANCE [Suspect]
     Active Substance: PALBOCICLIB
     Indication: BREAST CANCER FEMALE
     Dosage: 125 MG CYCLIC (DAILY FOR THREE WEEKS, THEREAFTER ONE WEEK OF)
     Route: 048
     Dates: start: 20200302, end: 20200317
  14. DEXAMETASON ABCUR [Concomitant]
     Indication: BREAST CANCER FEMALE
     Dosage: 4 MG, DAILY
     Route: 048
     Dates: end: 20200308
  15. CANDESARTAN KRKA [Concomitant]
     Active Substance: CANDESARTAN
     Indication: ANGINA PECTORIS
     Dosage: 32 MG, ONCE DAILY
     Route: 048
     Dates: end: 20200317
  16. AROMASIN [Concomitant]
     Active Substance: EXEMESTANE
     Indication: BREAST CANCER FEMALE
     Dosage: 25 MG, ONCE DAILY
     Route: 048
     Dates: start: 20200302

REACTIONS (5)
  - Acute respiratory distress syndrome [Fatal]
  - Respiratory failure [Fatal]
  - White blood cell count decreased [Unknown]
  - Haemoglobin decreased [Recovering/Resolving]
  - Platelet count decreased [Unknown]

NARRATIVE: CASE EVENT DATE: 202003
